FAERS Safety Report 16868946 (Version 1)
Quarter: 2019Q3

REPORT INFORMATION
  Report Type: Spontaneous
  Country: CN (occurrence: CN)
  Receive Date: 20190930
  Receipt Date: 20190930
  Transmission Date: 20191005
  Serious: Yes (Other)
  Sender: FDA-Public Use
  Company Number: CN-PFIZER INC-2019417682

PATIENT
  Age: 60 Year
  Sex: Male

DRUGS (2)
  1. LINEZOLID. [Suspect]
     Active Substance: LINEZOLID
     Dosage: UNK
  2. VORICONAZOLE. [Suspect]
     Active Substance: VORICONAZOLE
     Dosage: UNK

REACTIONS (6)
  - Haemorrhage [Unknown]
  - Pyrexia [Unknown]
  - Eyelid oedema [Unknown]
  - Pain in extremity [Not Recovered/Not Resolved]
  - Vision blurred [Unknown]
  - Oedema peripheral [Unknown]

NARRATIVE: CASE EVENT DATE: 20190728
